FAERS Safety Report 15968587 (Version 1)
Quarter: 2019Q1

REPORT INFORMATION
  Report Type: Spontaneous
  Country: US (occurrence: US)
  Receive Date: 20190215
  Receipt Date: 20190215
  Transmission Date: 20190418
  Serious: Yes (Other)
  Sender: FDA-Public Use
  Company Number: US-PFIZER INC-2019064724

PATIENT
  Age: 40 Year
  Sex: Male
  Weight: 95.2 kg

DRUGS (4)
  1. VIVITROL [Suspect]
     Active Substance: NALTREXONE
     Indication: DRUG DEPENDENCE
     Dosage: 380 MG, MONTHLY (380 MG, MONTHLY, INTRAMUSC-GLUT)
     Route: 030
     Dates: start: 20181217
  2. LYRICA [Suspect]
     Active Substance: PREGABALIN
     Dosage: 75 MG, 3X/DAY
     Dates: start: 20181217
  3. MOTRIN [Concomitant]
     Active Substance: IBUPROFEN
     Dosage: UNK
  4. TYLENOL 8HR [Concomitant]
     Active Substance: ACETAMINOPHEN
     Dosage: UNK

REACTIONS (6)
  - Alcoholism [Not Recovered/Not Resolved]
  - Muscle injury [Not Recovered/Not Resolved]
  - Pain [Not Recovered/Not Resolved]
  - Injection site reaction [Not Recovered/Not Resolved]
  - Injection site pain [Recovered/Resolved]
  - Tremor [Not Recovered/Not Resolved]

NARRATIVE: CASE EVENT DATE: 20181217
